FAERS Safety Report 23028204 (Version 2)
Quarter: 2024Q1

REPORT INFORMATION
  Report Type: Report from Study
  Country: US (occurrence: US)
  Receive Date: 20231004
  Receipt Date: 20240205
  Transmission Date: 20240410
  Serious: Yes (Hospitalization, Other)
  Sender: FDA-Public Use
  Company Number: US-PFIZER INC-PV202300160750

PATIENT
  Age: 74 Year
  Sex: Male

DRUGS (6)
  1. BRAFTOVI [Suspect]
     Active Substance: ENCORAFENIB
     Indication: Malignant melanoma
     Dosage: 450 MG (SIX 75 MG CAPSULES) ONCE DAILY BY MOUTH
     Dates: start: 20230820, end: 202309
  2. BRAFTOVI [Suspect]
     Active Substance: ENCORAFENIB
     Dosage: 300 MG (4 X 75 MG CAPSULES) ONCE DAILY BY MOUTH
     Dates: start: 202309
  3. BRAFTOVI [Suspect]
     Active Substance: ENCORAFENIB
     Dosage: 300 MG (4 X 75 MG CAPSULES) ONCE DAILY BY MOUTH
     Route: 048
     Dates: start: 202309
  4. MEKTOVI [Suspect]
     Active Substance: BINIMETINIB
     Indication: Malignant melanoma
     Dosage: 45 MG (THREE 15 MG TABLETS) TWICE DAILY BY MOUTH
     Route: 048
     Dates: start: 20230820, end: 202309
  5. MEKTOVI [Suspect]
     Active Substance: BINIMETINIB
     Dosage: 30 MG (2 X 15 MG TABLETS) TWICE DAILY BY MOUTH
     Dates: start: 202309
  6. MEKTOVI [Suspect]
     Active Substance: BINIMETINIB
     Dosage: 30 MG (2 X 15 MG TABLETS) TWICE DAILY BY MOUTH
     Route: 048
     Dates: start: 202309

REACTIONS (10)
  - Atrioventricular block [Unknown]
  - Thrombosis [Unknown]
  - Intestinal perforation [Unknown]
  - Cold sweat [Unknown]
  - Dysstasia [Unknown]
  - Blood iron decreased [Not Recovered/Not Resolved]
  - Condition aggravated [Not Recovered/Not Resolved]
  - Fatigue [Recovered/Resolved]
  - Dyspnoea [Not Recovered/Not Resolved]
  - Somnolence [Recovered/Resolved]
